FAERS Safety Report 10882947 (Version 1)
Quarter: 2015Q1

REPORT INFORMATION
  Report Type: Spontaneous
  Country: US (occurrence: None)
  Receive Date: 20150226
  Receipt Date: 20150226
  Transmission Date: 20150721
  Serious: Yes (Life-Threatening, Hospitalization)
  Sender: FDA-Public Use
  Company Number: None

PATIENT
  Age: 45 Year
  Sex: Female
  Weight: 79.38 kg

DRUGS (2)
  1. METRONIDAZOLE 500 MG WATSON [Suspect]
     Active Substance: METRONIDAZOLE
     Indication: GASTROINTESTINAL BACTERIAL INFECTION
     Dosage: 1 TABLET
     Route: 048
     Dates: start: 20141031, end: 20141031
  2. LOMOTYL [Concomitant]

REACTIONS (7)
  - Nausea [None]
  - Headache [None]
  - Nasopharyngitis [None]
  - Meningitis aseptic [None]
  - Neck pain [None]
  - Pyrexia [None]
  - Musculoskeletal pain [None]

NARRATIVE: CASE EVENT DATE: 20141101
